FAERS Safety Report 10969931 (Version 1)
Quarter: 2015Q1

REPORT INFORMATION
  Report Type: Spontaneous
  Country: SG (occurrence: None)
  Receive Date: 20150327
  Receipt Date: 20150327
  Transmission Date: 20150721
  Serious: Yes (Other)
  Sender: FDA-Public Use
  Company Number: IPC201503-000174

PATIENT
  Age: 62 Year
  Sex: Male

DRUGS (5)
  1. PREDNISOLONE. [Concomitant]
     Active Substance: PREDNISOLONE
  2. SULPHASALAZINE [Concomitant]
     Active Substance: SULFASALAZINE
  3. HYDROXYCHLOROQUINE SULFATE. [Suspect]
     Active Substance: HYDROXYCHLOROQUINE SULFATE
     Indication: RHEUMATOID ARTHRITIS
  4. METHOTREXATE [Concomitant]
     Active Substance: METHOTREXATE
  5. LEFLUNOMIDE. [Concomitant]
     Active Substance: LEFLUNOMIDE

REACTIONS (2)
  - Hypoglycaemia [None]
  - Loss of consciousness [None]
